FAERS Safety Report 9584941 (Version 1)
Quarter: 2013Q4

REPORT INFORMATION
  Report Type: Spontaneous
  Country: US (occurrence: US)
  Receive Date: 20131002
  Receipt Date: 20131002
  Transmission Date: 20140711
  Serious: No
  Sender: FDA-Public Use
  Company Number: US-AMGEN-USASP2013056488

PATIENT
  Age: 55 Year
  Sex: Female

DRUGS (4)
  1. ENBREL [Suspect]
     Indication: PRODUCT USED FOR UNKNOWN INDICATION
     Dosage: 50 MG, UNK
     Route: 065
     Dates: start: 2013
  2. SYNTHROID [Concomitant]
     Dosage: 100 MUG, UNK
  3. SINGULAIR [Concomitant]
     Dosage: 10 MG, UNK
  4. LEXAPRO [Concomitant]
     Dosage: 10 MG, UNK

REACTIONS (5)
  - Intervertebral disc protrusion [Unknown]
  - Hypoaesthesia [Unknown]
  - Flank pain [Unknown]
  - Arthritis [Unknown]
  - Injection site erythema [Unknown]
